FAERS Safety Report 12666563 (Version 1)
Quarter: 2016Q3

REPORT INFORMATION
  Report Type: Spontaneous
  Country: GB (occurrence: GB)
  Receive Date: 20160819
  Receipt Date: 20160819
  Transmission Date: 20161109
  Serious: Yes (Other)
  Sender: FDA-Public Use
  Company Number: GB-AMGEN-GBRSP2016105755

PATIENT
  Age: 61 Year
  Sex: Male

DRUGS (1)
  1. ENBREL [Suspect]
     Active Substance: ETANERCEPT
     Indication: RHEUMATOID ARTHRITIS
     Dosage: 50 MG, WEEKLY
     Route: 058
     Dates: start: 20160429, end: 20160804

REACTIONS (10)
  - Condition aggravated [Unknown]
  - Pain in extremity [Unknown]
  - Eye pain [Unknown]
  - Joint swelling [Unknown]
  - Uveitis [Unknown]
  - Rheumatoid arthritis [Unknown]
  - Eye discharge [Unknown]
  - Back pain [Unknown]
  - Drug effect decreased [Unknown]
  - Arthralgia [Unknown]
